FAERS Safety Report 5320918-5 (Version None)
Quarter: 2007Q2

REPORT INFORMATION
  Report Type: 
  Country: None (occurrence: None)
  Receive Date: 20070504
  Receipt Date: 20070427
  Transmission Date: 20071010
  Serious: Yes (Other)
  Sender: FDA-Public Use
  Company Number: THQ2007A00352

PATIENT
  Age: 74 Year
  Sex: Male

DRUGS (3)
  1. PROSTAP 3 (LEUPRORELIN ACETATE) (INJECTION) [Suspect]
     Indication: DRUG USE FOR UNKNOWN INDICATION
     Dosage: 1 IN 3 M; INJECTION
     Dates: end: 20060107
  2. LANSOPRAZOLE [Concomitant]
  3. PERINDOPRIL [Concomitant]

REACTIONS (2)
  - LABYRINTHITIS [None]
  - MENIERE'S DISEASE [None]
